FAERS Safety Report 23677095 (Version 1)
Quarter: 2024Q1

REPORT INFORMATION
  Report Type: Spontaneous
  Country: US (occurrence: US)
  Receive Date: 20240327
  Receipt Date: 20240327
  Transmission Date: 20240409
  Serious: No
  Sender: FDA-Public Use
  Company Number: US-TEVA-VS-3164312

PATIENT
  Sex: Female

DRUGS (1)
  1. FLUTICASONE PROPIONATE AND SALMETEROL [Suspect]
     Active Substance: FLUTICASONE PROPIONATE\SALMETEROL XINAFOATE
     Indication: Product used for unknown indication
     Dosage: 250/50 MCG/DOSE-MCG/DOSE
     Route: 065

REACTIONS (4)
  - Product dose omission issue [Unknown]
  - Confusional state [Unknown]
  - Overdose [Unknown]
  - Wrong technique in product usage process [Unknown]
